FAERS Safety Report 11433512 (Version 3)
Quarter: 2015Q3

REPORT INFORMATION
  Report Type: Report from Study
  Country: US (occurrence: US)
  Receive Date: 20150831
  Receipt Date: 20150923
  Transmission Date: 20151125
  Serious: Yes (Life-Threatening)
  Sender: FDA-Public Use
  Company Number: US-ROCHE-1627485

PATIENT
  Age: 57 Year
  Sex: Female
  Weight: 85 kg

DRUGS (6)
  1. CETUXIMAB [Suspect]
     Active Substance: CETUXIMAB
     Indication: ADENOCARCINOMA OF COLON
     Route: 042
     Dates: start: 20150512
  2. CETUXIMAB [Suspect]
     Active Substance: CETUXIMAB
     Dosage: CYCLE 2: DAY 1 AND DAY 15 OF THE CYCLE?(TOTAL CUMULATIVE DOSE RECIEVED WAS1000 MG DOSE)
     Route: 042
     Dates: start: 20150609
  3. IRINOTECAN [Suspect]
     Active Substance: IRINOTECAN
     Dosage: CYCLE 2: DAY 1 AND DAY 15 OF THE CYCLE?(TOTAL CUMULATIVE DOSE RECIEVED WAS 360 MG DOSE)
     Route: 042
     Dates: start: 20150609
  4. VEMURAFENIB [Suspect]
     Active Substance: VEMURAFENIB
     Indication: ADENOCARCINOMA OF COLON
     Route: 048
     Dates: start: 20150512
  5. VEMURAFENIB [Suspect]
     Active Substance: VEMURAFENIB
     Dosage: CYCLE 2: DAY 1 TO DAY 28?DATE OF LAST DOSE PRIOR TO THE EVENT:18/JUN/2015?(TOTAL CUMULATIVE DOSE OF
     Route: 048
     Dates: start: 20150618
  6. IRINOTECAN [Suspect]
     Active Substance: IRINOTECAN
     Indication: ADENOCARCINOMA OF COLON
     Route: 042
     Dates: start: 20150512

REACTIONS (1)
  - Neutrophil count decreased [Recovered/Resolved]

NARRATIVE: CASE EVENT DATE: 20150623
